FAERS Safety Report 7637280-5 (Version None)
Quarter: 2011Q3

REPORT INFORMATION
  Report Type: 
  Country: None (occurrence: None)
  Receive Date: 20110726
  Receipt Date: 20110721
  Transmission Date: 20111222
  Serious: Yes (Life-Threatening, Other)
  Sender: FDA-Public Use
  Company Number: GB-PFIZER INC-2011075748

PATIENT
  Age: 61 Year
  Sex: Male

DRUGS (4)
  1. SILDENAFIL CITRATE [Suspect]
     Indication: ERECTILE DYSFUNCTION
     Dosage: 50 MG, AS NEEDED
     Route: 048
     Dates: start: 20110210
  2. ACETYLSALICYLIC ACID [Concomitant]
     Indication: MYOCARDIAL ISCHAEMIA
     Dosage: 75 MG, 1X/DAY
     Route: 048
  3. SIMVASTATIN [Concomitant]
     Indication: MYOCARDIAL ISCHAEMIA
     Dosage: 80 MG, 1X/DAY
     Route: 048
     Dates: start: 20060616
  4. AMLODIPINE [Concomitant]
     Indication: MYOCARDIAL ISCHAEMIA
     Dosage: 10 MG, 1X/DAY
     Route: 048
     Dates: start: 20110208

REACTIONS (3)
  - VENTRICULAR FIBRILLATION [None]
  - CARDIOVASCULAR DISORDER [None]
  - CARDIAC ARREST [None]
